FAERS Safety Report 9380383 (Version 1)
Quarter: 2013Q3

REPORT INFORMATION
  Report Type: Spontaneous
  Country: FR (occurrence: FR)
  Receive Date: 20130702
  Receipt Date: 20130702
  Transmission Date: 20140515
  Serious: Yes (Hospitalization)
  Sender: FDA-Public Use
  Company Number: FR-BRISTOL-MYERS SQUIBB COMPANY-19037605

PATIENT
  Age: 80 Year
  Sex: Female

DRUGS (10)
  1. ABILIFY TABS 10 MG [Suspect]
     Route: 048
  2. CYMBALTA [Interacting]
     Route: 048
  3. TIAPRIDAL [Interacting]
     Dosage: 1DF=5MG/DROP (TIAPRIDE HYDROCHLORIDE) 3/D ORALLY
  4. LEPTICUR [Interacting]
     Route: 048
     Dates: end: 20130603
  5. ANAFRANIL [Interacting]
     Route: 048
  6. TEMESTA [Interacting]
     Route: 048
  7. TEMERIT [Concomitant]
  8. KARDEGIC [Concomitant]
  9. TAHOR [Concomitant]
  10. SINTROM [Concomitant]

REACTIONS (4)
  - Urinary retention [Not Recovered/Not Resolved]
  - Fall [Not Recovered/Not Resolved]
  - Confusional state [Not Recovered/Not Resolved]
  - Drug interaction [Unknown]
